FAERS Safety Report 12720550 (Version 1)
Quarter: 2016Q3

REPORT INFORMATION
  Report Type: Spontaneous
  Country: GB (occurrence: GB)
  Receive Date: 20160907
  Receipt Date: 20160907
  Transmission Date: 20161109
  Serious: Yes (Hospitalization)
  Sender: FDA-Public Use
  Company Number: GB-PURDUE PHARMA-CAN-2016-0006985

PATIENT
  Age: 30 Year
  Sex: Male

DRUGS (2)
  1. NICOTINE. [Concomitant]
     Active Substance: NICOTINE
     Indication: PRODUCT USED FOR UNKNOWN INDICATION
     Route: 055
  2. NON-PMN METHYLPHENIDATE HCL [Suspect]
     Active Substance: METHYLPHENIDATE HYDROCHLORIDE
     Indication: ATTENTION DEFICIT/HYPERACTIVITY DISORDER
     Dosage: UNK
     Route: 065

REACTIONS (4)
  - Coronary artery dissection [Recovered/Resolved]
  - Myocardial infarction [Recovered/Resolved]
  - Left ventricular dysfunction [Recovered/Resolved]
  - Ventricular hypokinesia [Recovered/Resolved]
